FAERS Safety Report 18034953 (Version 1)
Quarter: 2020Q3

REPORT INFORMATION
  Report Type: Spontaneous
  Country: US (occurrence: US)
  Receive Date: 20200716
  Receipt Date: 20200716
  Transmission Date: 20201103
  Serious: Yes (Life-Threatening, Hospitalization)
  Sender: FDA-Public Use
  Company Number: None

PATIENT
  Age: 38 Year
  Sex: Male
  Weight: 83.3 kg

DRUGS (1)
  1. CROFAB [Suspect]
     Active Substance: CROTALIDAE POLYVALENT IMMUNE FAB (OVINE)
     Indication: SNAKE BITE
     Dosage: ?          OTHER FREQUENCY:STAT ONCE;?
     Route: 041
     Dates: start: 20200715, end: 20200715

REACTIONS (4)
  - Pruritus [None]
  - Dyspnoea [None]
  - Throat irritation [None]
  - Swelling [None]

NARRATIVE: CASE EVENT DATE: 20200715
